FAERS Safety Report 6712019-6 (Version None)
Quarter: 2010Q2

REPORT INFORMATION
  Report Type: 
  Country: None (occurrence: None)
  Receive Date: 20100505
  Receipt Date: 20100430
  Transmission Date: 20101027
  Serious: Yes (Hospitalization, Other)
  Sender: FDA-Public Use
  Company Number: FI-PFIZER INC-2009176753

PATIENT
  Age: 83 Year
  Sex: Male

DRUGS (9)
  1. FESOTERODINE [Suspect]
     Indication: HYPERTONIC BLADDER
     Dosage: 4 MG, 1X/DAY
     Route: 048
     Dates: start: 20090223, end: 20090225
  2. *PLACEBO [Suspect]
     Indication: HYPERTONIC BLADDER
     Dosage: 4 MG, 1X/DAY
     Route: 048
     Dates: start: 20081203, end: 20090223
  3. ASASANTIN RETARD [Concomitant]
     Route: 048
     Dates: start: 19860101, end: 20090226
  4. PLENDIL [Concomitant]
     Dosage: 2.5 MG, UNK
     Route: 048
     Dates: start: 19860101
  5. METOPROLOL [Concomitant]
     Dosage: 47.5 MG, UNK
     Route: 048
     Dates: start: 20070101
  6. CALCIUM WITH VITAMIN D [Concomitant]
     Dosage: UNK
     Route: 048
     Dates: start: 20070101
  7. PREDNISONE TAB [Concomitant]
     Dosage: 0.5 MG, ALTERNATE DAY
     Route: 048
     Dates: start: 20070101
  8. SOMAC [Concomitant]
     Indication: DUODENAL ULCER
     Dosage: 20 MG, 1X/DAY
     Route: 048
     Dates: start: 20070101
  9. OPTINATE SEPTIMUM [Concomitant]
     Indication: OSTEOPOROSIS
     Dosage: 35 MG, WEEKLY
     Route: 048
     Dates: start: 20070101

REACTIONS (1)
  - TRANSIENT ISCHAEMIC ATTACK [None]
